FAERS Safety Report 13292721 (Version 1)
Quarter: 2017Q1

REPORT INFORMATION
  Report Type: Spontaneous
  Country: JP (occurrence: JP)
  Receive Date: 20170303
  Receipt Date: 20170303
  Transmission Date: 20170428
  Serious: Yes (Other)
  Sender: FDA-Public Use
  Company Number: PHHY2017JP031056

PATIENT
  Age: 26 Year
  Sex: Male

DRUGS (14)
  1. CYTARABINE. [Suspect]
     Active Substance: CYTARABINE
     Indication: EPSTEIN-BARR VIRUS INFECTION
     Route: 065
  2. DOXORUBICIN [Suspect]
     Active Substance: DOXORUBICIN
     Indication: EPSTEIN-BARR VIRUS INFECTION
     Route: 065
  3. CYCLOPHOSPHAMIDE. [Suspect]
     Active Substance: CYCLOPHOSPHAMIDE
     Dosage: 100 MG/KG, UNK
     Route: 065
  4. CICLOSPORIN [Suspect]
     Active Substance: CYCLOSPORINE
     Indication: EPSTEIN-BARR VIRUS INFECTION
     Route: 065
  5. ETOPOSIDE. [Suspect]
     Active Substance: ETOPOSIDE
     Dosage: 300 MG/M2, UNK
     Route: 065
  6. METHOTREXATE. [Suspect]
     Active Substance: METHOTREXATE
     Indication: PROPHYLAXIS AGAINST GRAFT VERSUS HOST DISEASE
     Route: 065
  7. TACROLIMUS. [Suspect]
     Active Substance: TACROLIMUS
     Indication: PROPHYLAXIS AGAINST GRAFT VERSUS HOST DISEASE
     Route: 065
  8. CYCLOPHOSPHAMIDE. [Suspect]
     Active Substance: CYCLOPHOSPHAMIDE
     Indication: EPSTEIN-BARR VIRUS INFECTION
     Route: 065
  9. PREDNISOLON [Suspect]
     Active Substance: PREDNISOLONE
     Indication: EPSTEIN-BARR VIRUS INFECTION
     Route: 065
  10. ETOPOSIDE. [Suspect]
     Active Substance: ETOPOSIDE
     Indication: EPSTEIN-BARR VIRUS INFECTION
     Route: 065
  11. L-ASPARAGINASE [Suspect]
     Active Substance: ASPARAGINASE
     Indication: EPSTEIN-BARR VIRUS INFECTION
     Route: 065
  12. FLUDARABIN [Suspect]
     Active Substance: FLUDARABINE PHOSPHATE
     Indication: EPSTEIN-BARR VIRUS INFECTION
     Dosage: 180 MG/M2, UNK
     Route: 065
  13. DEXAMETHASON [Suspect]
     Active Substance: DEXAMETHASONE
     Indication: EPSTEIN-BARR VIRUS INFECTION
     Route: 065
  14. VINCRISTINE [Suspect]
     Active Substance: VINCRISTINE
     Indication: EPSTEIN-BARR VIRUS INFECTION
     Route: 065

REACTIONS (3)
  - Drug ineffective [Unknown]
  - Neuroendocrine tumour [Unknown]
  - Graft versus host disease [Recovered/Resolved]
